FAERS Safety Report 19443458 (Version 2)
Quarter: 2021Q2

REPORT INFORMATION
  Report Type: Spontaneous
  Country: IT (occurrence: IT)
  Receive Date: 20210621
  Receipt Date: 20210630
  Transmission Date: 20210717
  Serious: Yes (Hospitalization, Other)
  Sender: FDA-Public Use
  Company Number: IT-PFIZER INC-2021691326

PATIENT
  Age: 39 Year
  Sex: Male

DRUGS (3)
  1. NIVOLUMAB [Concomitant]
     Active Substance: NIVOLUMAB
     Indication: MALIGNANT MELANOMA
     Dosage: 2880 MG (FREQ:{TOTAL})
     Dates: start: 201903, end: 201911
  2. METHYLPREDNISOLONE. [Suspect]
     Active Substance: METHYLPREDNISOLONE
     Indication: TRANSAMINASES INCREASED
     Dosage: 2 MG/KG (HIGH DOSE)
     Route: 042
     Dates: start: 201903
  3. PREDNISONE. [Suspect]
     Active Substance: PREDNISONE
     Indication: TRANSAMINASES INCREASED
     Dosage: 1 MG/KG, 1X/DAY
     Route: 048
     Dates: start: 2019

REACTIONS (3)
  - Condition aggravated [Recovered/Resolved]
  - Hepatitis B [Unknown]
  - Hepatitis B reactivation [Recovered/Resolved]

NARRATIVE: CASE EVENT DATE: 201911
